FAERS Safety Report 10206648 (Version 2)
Quarter: 2014Q2

REPORT INFORMATION
  Report Type: Spontaneous
  Country: CA (occurrence: CA)
  Receive Date: 20140530
  Receipt Date: 20140623
  Transmission Date: 20141212
  Serious: Yes (Other)
  Sender: FDA-Public Use
  Company Number: CA-AMGEN INC.-CANSP2014038951

PATIENT
  Age: 57 Year
  Sex: Female
  Weight: 44.9 kg

DRUGS (8)
  1. PROLIA [Suspect]
     Indication: OSTEOPOROSIS
     Dosage: 60 MG, Q6MO
     Route: 058
     Dates: start: 20110811
  2. VITAMIN C                          /00008001/ [Concomitant]
  3. VITAMIN D                          /00107901/ [Concomitant]
  4. CALCIUM [Concomitant]
  5. CORTISONE                          /00014602/ [Concomitant]
     Indication: JOINT STIFFNESS
  6. VITAMIN B12                        /00056201/ [Concomitant]
     Indication: JOINT STIFFNESS
  7. DEPO MEDROL [Concomitant]
     Indication: TENDONITIS
     Dosage: 40 MG, UNK
  8. MARCAIN                            /00044301/ [Concomitant]
     Indication: TENDONITIS

REACTIONS (7)
  - Sciatica [Not Recovered/Not Resolved]
  - Humerus fracture [Unknown]
  - Walking aid user [Not Recovered/Not Resolved]
  - Injury [Unknown]
  - Arthralgia [Not Recovered/Not Resolved]
  - Joint stiffness [Unknown]
  - Joint effusion [Unknown]
